FAERS Safety Report 10248666 (Version 1)
Quarter: 2014Q2

REPORT INFORMATION
  Report Type: Spontaneous
  Country: US (occurrence: None)
  Receive Date: 20140617
  Receipt Date: 20140617
  Transmission Date: 20141212
  Serious: Yes (Other)
  Sender: FDA-Public Use
  Company Number: None

PATIENT
  Age: 6 Year
  Sex: Male
  Weight: 31.75 kg

DRUGS (1)
  1. TOPAMAX [Suspect]
     Indication: MIGRAINE
     Dosage: 1 PILL BID ORAL
     Route: 048
     Dates: start: 20130307, end: 20140616

REACTIONS (5)
  - Anhidrosis [None]
  - Tachycardia [None]
  - Skin discolouration [None]
  - Temperature intolerance [None]
  - Exercise tolerance decreased [None]
